FAERS Safety Report 4385108-1 (Version None)
Quarter: 2004Q2

REPORT INFORMATION
  Report Type: 
  Country: None (occurrence: None)
  Receive Date: 20040624
  Receipt Date: 20040624
  Transmission Date: 20050107
  Serious: Yes (Other)
  Sender: FDA-Public Use
  Company Number: None

PATIENT
  Sex: Male

DRUGS (10)
  1. FLOXIN OTIC 0.3% [Suspect]
     Indication: OTITIS EXTERNA
     Dosage: 2 DROPS BID AURICULAR
     Route: 001
     Dates: start: 20040311, end: 20040313
  2. GLYBURIDE [Concomitant]
  3. LISINOPRIL [Concomitant]
  4. FELODIPINE [Concomitant]
  5. METOPROLOL TARTRATE [Concomitant]
  6. HYDROCHLOROTHIAZIDE [Concomitant]
  7. ROSIGLITAZONE [Concomitant]
  8. ASPIRIN [Concomitant]
  9. SIMVASTATIN [Concomitant]
  10. HYDRALAZINE [Concomitant]

REACTIONS (2)
  - PRURITUS [None]
  - RASH MACULAR [None]
